FAERS Safety Report 7418472-7 (Version None)
Quarter: 2011Q2

REPORT INFORMATION
  Report Type: 
  Country: None (occurrence: None)
  Receive Date: 20110407
  Receipt Date: 20110329
  Transmission Date: 20111010
  Serious: Yes (Hospitalization)
  Sender: FDA-Public Use
  Company Number: WAES 1103USA03710

PATIENT
  Age: 32 Year
  Sex: Male
  Weight: 75.7507 kg

DRUGS (4)
  1. CAP VORINOSTAT UNK [Suspect]
     Indication: HODGKIN'S DISEASE
     Dosage: 400 MG/DAILY/PO ; 400 0MG/DAILY/PO
     Route: 048
     Dates: start: 20110217, end: 20110302
  2. CAP VORINOSTAT UNK [Suspect]
     Indication: HODGKIN'S DISEASE
     Dosage: 400 MG/DAILY/PO ; 400 0MG/DAILY/PO
     Route: 048
     Dates: start: 20110310
  3. NIACINAMIDE UNK [Suspect]
     Indication: HODGKIN'S DISEASE
     Dosage: 7700 MG/DAILY/PO ; 7700 MG/DAILY/PO
     Route: 048
     Dates: start: 20110217, end: 20110302
  4. NIACINAMIDE UNK [Suspect]
     Indication: HODGKIN'S DISEASE
     Dosage: 7700 MG/DAILY/PO ; 7700 MG/DAILY/PO
     Route: 048
     Dates: start: 20110310

REACTIONS (5)
  - FATIGUE [None]
  - TENDERNESS [None]
  - ERYTHEMA [None]
  - RASH [None]
  - MEDICAL DEVICE COMPLICATION [None]
